FAERS Safety Report 14345641 (Version 1)
Quarter: 2018Q1

REPORT INFORMATION
  Report Type: Spontaneous
  Country: US (occurrence: US)
  Receive Date: 20180103
  Receipt Date: 20180103
  Transmission Date: 20180509
  Serious: No
  Sender: FDA-Public Use
  Company Number: US-BAYER-2017-248303

PATIENT
  Sex: Female
  Weight: 57 kg

DRUGS (2)
  1. VITAMIN D3 [Concomitant]
     Active Substance: CHOLECALCIFEROL
     Dosage: UNK
  2. CLARITIN [Suspect]
     Active Substance: LORATADINE
     Indication: PRURITUS
     Dosage: 0.5 DF, UNK
     Route: 048

REACTIONS (6)
  - Product prescribing issue [Unknown]
  - Product use in unapproved indication [Unknown]
  - Incorrect dose administered [Unknown]
  - Off label use [Unknown]
  - Somnolence [Unknown]
  - Drug administration error [Unknown]
